FAERS Safety Report 10011412 (Version 1)
Quarter: 2014Q1

REPORT INFORMATION
  Report Type: Spontaneous
  Country: MX (occurrence: MX)
  Receive Date: 20140314
  Receipt Date: 20140314
  Transmission Date: 20141002
  Serious: Yes (Other)
  Sender: FDA-Public Use
  Company Number: MX-BAYER-2014-036364

PATIENT
  Age: 26 Year
  Sex: Female

DRUGS (1)
  1. MIRENA [Suspect]
     Dosage: 20 ?G, QD
     Route: 015

REACTIONS (6)
  - Ectopic pregnancy with contraceptive device [None]
  - Ruptured ectopic pregnancy [None]
  - Peritoneal haemorrhage [Unknown]
  - Amenorrhoea [Not Recovered/Not Resolved]
  - Abdominal pain [None]
  - Drug ineffective [None]
